FAERS Safety Report 10781813 (Version 1)
Quarter: 2015Q1

REPORT INFORMATION
  Report Type: Spontaneous
  Country: US (occurrence: US)
  Receive Date: 20150210
  Receipt Date: 20150210
  Transmission Date: 20150721
  Serious: No
  Sender: FDA-Public Use
  Company Number: US-GLAXOSMITHKLINE-A1073580A

PATIENT

DRUGS (4)
  1. CHOLESTEROL [Concomitant]
     Active Substance: CHOLESTEROL
  2. TYLENOL [Concomitant]
     Active Substance: ACETAMINOPHEN
  3. EQUATE NICOTINE [Suspect]
     Active Substance: NICOTINE
     Indication: EX-TOBACCO USER
     Dates: start: 20140512, end: 20140513
  4. HOT FLASH [Concomitant]

REACTIONS (7)
  - Application site pruritus [Recovered/Resolved]
  - Application site erythema [Recovered/Resolved]
  - Rash [Recovering/Resolving]
  - Hypersensitivity [Not Recovered/Not Resolved]
  - Blister [Recovering/Resolving]
  - Application site swelling [Recovered/Resolved]
  - Application site pain [Unknown]

NARRATIVE: CASE EVENT DATE: 20140512
